FAERS Safety Report 14171906 (Version 3)
Quarter: 2017Q4

REPORT INFORMATION
  Report Type: Spontaneous
  Country: DE (occurrence: DE)
  Receive Date: 20171108
  Receipt Date: 20171222
  Transmission Date: 20180321
  Serious: Yes (Other)
  Sender: FDA-Public Use
  Company Number: DE-B.I. PHARMACEUTICALS,INC./RIDGEFIELD-2017-BI-059740

PATIENT
  Age: 43 Year
  Sex: Male
  Weight: 71 kg

DRUGS (1)
  1. GILOTRIF [Suspect]
     Active Substance: AFATINIB
     Indication: NON-SMALL CELL LUNG CANCER
     Route: 065
     Dates: start: 20131128

REACTIONS (11)
  - Dry skin [Unknown]
  - Paronychia [Unknown]
  - Trichiasis [Unknown]
  - Diarrhoea [Unknown]
  - Visual field defect [Unknown]
  - Rash papular [Unknown]
  - Hemiplegia [Unknown]
  - Autonomic nervous system imbalance [Unknown]
  - Skin fissures [Unknown]
  - Pruritus [Unknown]
  - Anal fissure [Unknown]

NARRATIVE: CASE EVENT DATE: 201408
